FAERS Safety Report 25964913 (Version 1)
Quarter: 2025Q4

REPORT INFORMATION
  Report Type: Spontaneous
  Country: GB (occurrence: GB)
  Receive Date: 20251027
  Receipt Date: 20251027
  Transmission Date: 20260117
  Serious: Yes (Hospitalization, Other)
  Sender: B. BRAUN MEDICAL INC.
  Company Number: GB-B. Braun Medical Inc.-GB-BBM-202504120

PATIENT
  Age: 45 Year
  Sex: Female

DRUGS (3)
  1. ACETAMINOPHEN [Suspect]
     Active Substance: ACETAMINOPHEN
     Indication: Product used for unknown indication
  2. CANNABIS SATIVA SEED OIL\HERBALS [Suspect]
     Active Substance: CANNABIS SATIVA SEED OIL\HERBALS
  3. FLUCLOXACILLIN [Interacting]
     Active Substance: FLUCLOXACILLIN

REACTIONS (9)
  - Drug-induced liver injury [Recovering/Resolving]
  - Abdominal pain upper [Recovering/Resolving]
  - Fatigue [Recovering/Resolving]
  - C-reactive protein increased [Recovering/Resolving]
  - Hepatic steatosis [Recovering/Resolving]
  - Hepatic enzyme increased [Recovering/Resolving]
  - Blood bilirubin increased [Recovering/Resolving]
  - Alanine aminotransferase increased [Recovering/Resolving]
  - Drug interaction [Recovering/Resolving]
